FAERS Safety Report 10356741 (Version 2)
Quarter: 2014Q3

REPORT INFORMATION
  Report Type: Spontaneous
  Country: US (occurrence: US)
  Receive Date: 20140801
  Receipt Date: 20140801
  Transmission Date: 20150326
  Serious: Yes (Hospitalization, Other)
  Sender: FDA-Public Use
  Company Number: US-AMGEN-USASP2014009351

PATIENT
  Age: 58 Year
  Sex: Male

DRUGS (1)
  1. ENBREL [Suspect]
     Active Substance: ETANERCEPT
     Indication: PSORIASIS
     Dosage: 50 MG, QWK
     Route: 065
     Dates: start: 20090101

REACTIONS (6)
  - Blood creatinine decreased [Not Recovered/Not Resolved]
  - Diabetic coma [Recovered/Resolved]
  - Parotitis [Recovered/Resolved]
  - Renal failure acute [Recovered/Resolved]
  - Organ failure [Recovered/Resolved]
  - Encephalitis [Recovered/Resolved]

NARRATIVE: CASE EVENT DATE: 2009
